FAERS Safety Report 18028624 (Version 1)
Quarter: 2020Q3

REPORT INFORMATION
  Report Type: Report from Study
  Country: US (occurrence: US)
  Receive Date: 20200715
  Receipt Date: 20200715
  Transmission Date: 20201103
  Serious: Yes (Death)
  Sender: FDA-Public Use
  Company Number: US-ASTRAZENECA-2020SE88458

PATIENT
  Age: 25483 Day
  Sex: Male

DRUGS (1)
  1. LYNPARZA [Suspect]
     Active Substance: OLAPARIB
     Indication: BREAST CANCER MALE
     Route: 048
     Dates: start: 20191120

REACTIONS (1)
  - Death [Fatal]

NARRATIVE: CASE EVENT DATE: 20200621
